FAERS Safety Report 12802990 (Version 2)
Quarter: 2016Q4

REPORT INFORMATION
  Report Type: Spontaneous
  Country: JP (occurrence: JP)
  Receive Date: 20161003
  Receipt Date: 20161024
  Transmission Date: 20170207
  Serious: Yes (Disabling)
  Sender: FDA-Public Use
  Company Number: JP-SA-2016SA179043

PATIENT
  Age: 66 Year
  Sex: Male
  Weight: 77 kg

DRUGS (5)
  1. PHYSIO 140 [Concomitant]
     Indication: FLUID REPLACEMENT
     Route: 042
     Dates: start: 20160704, end: 20160707
  2. SOLITA-T3 INJECTION [Concomitant]
     Indication: FLUID REPLACEMENT
     Route: 042
     Dates: start: 20160704, end: 20160707
  3. CLEXANE [Suspect]
     Active Substance: ENOXAPARIN SODIUM
     Indication: DIVERTICULITIS
     Route: 058
     Dates: start: 20160705, end: 20160707
  4. FLUMARIN [Concomitant]
     Active Substance: FLOMOXEF SODIUM
     Indication: INFECTION PROPHYLAXIS
     Route: 042
     Dates: start: 20160704, end: 20160707
  5. BFLUID [Concomitant]
     Active Substance: AMINO ACIDS\DEXTROSE\ELECTROLYTES NOS\VITAMINS
     Indication: FLUID REPLACEMENT
     Route: 042
     Dates: start: 20160704, end: 20160707

REACTIONS (4)
  - Gastrointestinal anastomotic leak [Recovered/Resolved with Sequelae]
  - Anastomotic leak [Recovered/Resolved with Sequelae]
  - Abdominal pain [Recovered/Resolved with Sequelae]
  - Peritonitis [Recovered/Resolved with Sequelae]

NARRATIVE: CASE EVENT DATE: 20160707
